FAERS Safety Report 15047795 (Version 2)
Quarter: 2018Q3

REPORT INFORMATION
  Report Type: Spontaneous
  Country: US (occurrence: US)
  Receive Date: 20180621
  Receipt Date: 20180721
  Transmission Date: 20181010
  Serious: No
  Sender: FDA-Public Use
  Company Number: US-JNJFOC-20180609860

PATIENT
  Age: 60 Year
  Sex: Male
  Weight: 63 kg

DRUGS (12)
  1. CALCIUM [Concomitant]
     Active Substance: CALCIUM
  2. AZITHROMYCIN ANHYDROUS. [Concomitant]
     Active Substance: AZITHROMYCIN ANHYDROUS
  3. VITAMIN B COMPLEX [Concomitant]
     Active Substance: CYANOCOBALAMIN\DEXPANTHENOL\NIACINAMIDE\PYRIDOXINE HYDROCHLORIDE\RIBOFLAVIN 5^-PHOSPHATE SODIUM\THIAMINE HYDROCHLORIDE\VITAMIN B COMPLEX
  4. METOPROLOL. [Concomitant]
     Active Substance: METOPROLOL
  5. FLUCONAZOLE. [Concomitant]
     Active Substance: FLUCONAZOLE
  6. IMBRUVICA [Suspect]
     Active Substance: IBRUTINIB
     Indication: GRAFT VERSUS HOST DISEASE
     Route: 048
     Dates: start: 20180424, end: 201805
  7. PREDNISONE. [Concomitant]
     Active Substance: PREDNISONE
  8. IMBRUVICA [Suspect]
     Active Substance: IBRUTINIB
     Indication: GRAFT VERSUS HOST DISEASE
     Route: 048
     Dates: start: 20170530
  9. ACYCLOVIR. [Concomitant]
     Active Substance: ACYCLOVIR
  10. ISOSORBIDE. [Concomitant]
     Active Substance: ISOSORBIDE
  11. SULFASALAZINE. [Concomitant]
     Active Substance: SULFASALAZINE
  12. VITAMIN D3 [Concomitant]
     Active Substance: CHOLECALCIFEROL

REACTIONS (3)
  - Drug ineffective [Unknown]
  - Product use in unapproved indication [Unknown]
  - Off label use [Unknown]

NARRATIVE: CASE EVENT DATE: 20170530
